FAERS Safety Report 24938062 (Version 1)
Quarter: 2025Q1

REPORT INFORMATION
  Report Type: Spontaneous
  Country: US (occurrence: US)
  Receive Date: 20250206
  Receipt Date: 20250206
  Transmission Date: 20250409
  Serious: No
  Sender: BAYER HEALTHCARE PHARMACEUTICALS INC.
  Company Number: US-BAYER-2025A015321

PATIENT
  Sex: Female
  Weight: 37.642 kg

DRUGS (7)
  1. ADEMPAS [Suspect]
     Active Substance: RIOCIGUAT
  2. REMODULIN [Suspect]
     Active Substance: TREPROSTINIL
  3. WINREVAIR [Concomitant]
     Active Substance: SOTATERCEPT-CSRK
     Indication: Pulmonary arterial hypertension
     Dosage: 0.2 ML, Q3WK
     Route: 058
     Dates: start: 20241029
  4. OPSUMIT [Concomitant]
     Active Substance: MACITENTAN
  5. TADALAFIL [Concomitant]
     Active Substance: TADALAFIL
  6. METOPROLOL SUCCINATE [Concomitant]
     Active Substance: METOPROLOL SUCCINATE
  7. OXYGEN [Concomitant]
     Active Substance: OXYGEN

REACTIONS (1)
  - Rash papular [Recovering/Resolving]
